FAERS Safety Report 8079704-8 (Version None)
Quarter: 2012Q1

REPORT INFORMATION
  Report Type: 
  Country: None (occurrence: None)
  Receive Date: 20120128
  Receipt Date: 20110718
  Transmission Date: 20120608
  Serious: No
  Sender: FDA-Public Use
  Company Number: US-ABBOTT-11P-163-0840298-00

PATIENT
  Sex: Female

DRUGS (9)
  1. HUMIRA [Suspect]
     Indication: ANKYLOSING SPONDYLITIS
     Dates: start: 20110622
  2. HUMIRA [Suspect]
     Indication: PSORIATIC ARTHROPATHY
     Dates: start: 20101001, end: 20110101
  3. HUMIRA [Suspect]
     Indication: PUSTULAR PSORIASIS
  4. DIAZEPAM [Concomitant]
     Indication: MUSCLE SPASMS
  5. LEXAPRO [Concomitant]
     Indication: ANXIETY
     Route: 048
  6. LEXAPRO [Concomitant]
     Indication: DEPRESSION
  7. LYRICA [Concomitant]
     Indication: PRODUCT USED FOR UNKNOWN INDICATION
     Route: 048
  8. DIAZEPAM [Concomitant]
     Indication: ANXIETY
     Dosage: 5 MG DAILY
     Route: 048
  9. NEXIUM [Concomitant]
     Indication: GASTROOESOPHAGEAL REFLUX DISEASE
     Route: 048

REACTIONS (3)
  - UPPER RESPIRATORY TRACT INFECTION [None]
  - ARTHRALGIA [None]
  - PSORIASIS [None]
